FAERS Safety Report 7942081-4 (Version None)
Quarter: 2011Q4

REPORT INFORMATION
  Report Type: 
  Country: None (occurrence: None)
  Receive Date: 20111122
  Receipt Date: 20111122
  Transmission Date: 20120403
  Serious: No
  Sender: FDA-Public Use
  Company Number: None

PATIENT
  Sex: Female
  Weight: 81.6475 kg

DRUGS (1)
  1. ESTRATEST [Suspect]
     Indication: HYSTERECTOMY
     Dosage: FS TAB
     Dates: start: 20060501, end: 20111101

REACTIONS (12)
  - HAIR GROWTH ABNORMAL [None]
  - VISUAL IMPAIRMENT [None]
  - DISCOMFORT [None]
  - ACNE [None]
  - DIZZINESS [None]
  - BALANCE DISORDER [None]
  - GROIN PAIN [None]
  - ARTHROPATHY [None]
  - NO THERAPEUTIC RESPONSE [None]
  - ALOPECIA [None]
  - LOCAL SWELLING [None]
  - GENITAL SWELLING [None]
